FAERS Safety Report 19576434 (Version 1)
Quarter: 2021Q3

REPORT INFORMATION
  Report Type: Spontaneous
  Country: US (occurrence: US)
  Receive Date: 20210717
  Receipt Date: 20210717
  Transmission Date: 20211014
  Serious: No
  Sender: FDA-Public Use
  Company Number: None

PATIENT
  Sex: Female

DRUGS (3)
  1. HUMIRA [Suspect]
     Active Substance: ADALIMUMAB
     Indication: ARTHRITIS ENTEROPATHIC
     Dosage: 40 MG/0.4ML EVERY 10 DAYS SQ?
     Route: 058
     Dates: start: 20210706
  2. HUMIRA [Suspect]
     Active Substance: ADALIMUMAB
     Indication: RHEUMATOID ARTHRITIS
     Dosage: 40 MG/0.4ML EVERY 10 DAYS SQ?
     Route: 058
     Dates: start: 20210706
  3. HUMIRA [Suspect]
     Active Substance: ADALIMUMAB
     Indication: COLITIS
     Dosage: 40 MG/0.4ML EVERY 10 DAYS SQ?
     Route: 058
     Dates: start: 20210706

REACTIONS (3)
  - Colitis ulcerative [None]
  - Abdominal pain lower [None]
  - Diarrhoea [None]
